FAERS Safety Report 8040972-X (Version None)
Quarter: 2012Q1

REPORT INFORMATION
  Report Type: 
  Country: None (occurrence: None)
  Receive Date: 20120112
  Receipt Date: 20120105
  Transmission Date: 20120608
  Serious: No
  Sender: FDA-Public Use
  Company Number: US-BIOGENIDEC-2012BI000687

PATIENT
  Sex: Female

DRUGS (3)
  1. TYSABRI [Suspect]
     Route: 042
     Dates: start: 20100713, end: 20101007
  2. TYSABRI [Suspect]
     Indication: MULTIPLE SCLEROSIS
     Route: 042
     Dates: start: 20110922, end: 20110922
  3. TYSABRI [Suspect]
     Route: 042
     Dates: start: 20061102, end: 20070605

REACTIONS (2)
  - MUSCLE SPASMS [None]
  - ATRIAL FLUTTER [None]
